FAERS Safety Report 6911054-2 (Version None)
Quarter: 2010Q3

REPORT INFORMATION
  Report Type: 
  Country: None (occurrence: None)
  Receive Date: 20100806
  Receipt Date: 20100802
  Transmission Date: 20110219
  Serious: Yes (Hospitalization)
  Sender: FDA-Public Use
  Company Number: D0068488A

PATIENT
  Age: 15 Year
  Sex: Female
  Weight: 50 kg

DRUGS (1)
  1. SUMATRIPTAN [Suspect]
     Dosage: 50MG SINGLE DOSE
     Route: 048
     Dates: start: 20100714, end: 20100714

REACTIONS (3)
  - DIZZINESS [None]
  - FLUSHING [None]
  - THROAT TIGHTNESS [None]
